FAERS Safety Report 4507751-9 (Version None)
Quarter: 2004Q4

REPORT INFORMATION
  Report Type: 
  Country: None (occurrence: None)
  Receive Date: 20041123
  Receipt Date: 20041109
  Transmission Date: 20050328
  Serious: Yes (Life-Threatening)
  Sender: FDA-Public Use
  Company Number: 200413437JP

PATIENT
  Age: 77 Year
  Sex: Male

DRUGS (6)
  1. KETEK [Suspect]
     Indication: BRONCHITIS
     Route: 048
     Dates: start: 20040904, end: 20040912
  2. ADALAT [Concomitant]
     Indication: HYPERTENSION
     Route: 048
  3. SERENAL [Concomitant]
     Dosage: DOSE: 2 TABLETS
     Route: 048
  4. INTEBAN [Concomitant]
     Indication: PAIN
     Dosage: DOSE: 2 TABLETS
     Route: 048
     Dates: start: 20040902, end: 20040912
  5. INTEBAN [Concomitant]
     Indication: PYREXIA
     Dosage: DOSE: 2 TABLETS
     Route: 048
     Dates: start: 20040902, end: 20040912
  6. CODEIN PHOSPHATE [Concomitant]
     Indication: COUGH
     Route: 048
     Dates: start: 20040904, end: 20040912

REACTIONS (1)
  - CARDIAC ARREST [None]
